FAERS Safety Report 16216586 (Version 1)
Quarter: 2019Q2

REPORT INFORMATION
  Report Type: Spontaneous
  Country: CA (occurrence: CA)
  Receive Date: 20190419
  Receipt Date: 20190419
  Transmission Date: 20190711
  Serious: Yes (Other)
  Sender: FDA-Public Use
  Company Number: CA-AUROBINDO-AUR-APL-2019-020715

PATIENT

DRUGS (2)
  1. VALSARTAN. [Suspect]
     Active Substance: VALSARTAN
     Indication: PRODUCT USED FOR UNKNOWN INDICATION
     Dosage: 80 MILLIGRAM,1 EVERY 1 DAY(S)
     Route: 065
  2. SANDOSTATIN [Suspect]
     Active Substance: OCTREOTIDE ACETATE
     Indication: NEUROENDOCRINE CARCINOMA
     Dosage: 30 MILLIGRAM,1 EVERY 1 MONTH(S)
     Route: 030

REACTIONS (16)
  - Fatigue [Unknown]
  - Hepatic cancer [Unknown]
  - Lower respiratory tract infection [Unknown]
  - Stress [Unknown]
  - Insomnia [Unknown]
  - Nephrolithiasis [Unknown]
  - Ear infection [Unknown]
  - Neoplasm progression [Unknown]
  - Body temperature decreased [Unknown]
  - Blood pressure diastolic decreased [Unknown]
  - Blood pressure increased [Unknown]
  - Heart rate decreased [Unknown]
  - Oral disorder [Unknown]
  - Sinusitis [Unknown]
  - Malignant neoplasm progression [Unknown]
  - Blood pressure systolic increased [Unknown]
